FAERS Safety Report 18413461 (Version 1)
Quarter: 2020Q4

REPORT INFORMATION
  Report Type: Other
  Country: US (occurrence: US)
  Receive Date: 20201021
  Receipt Date: 20201021
  Transmission Date: 20210114
  Serious: Yes (Hospitalization)
  Sender: FDA-Public Use
  Company Number: US-ROCHE-2696759

PATIENT
  Sex: Female

DRUGS (2)
  1. PULMOZYME [Suspect]
     Active Substance: DORNASE ALFA
     Indication: CYSTIC FIBROSIS
     Dosage: NEBULIZE THE CONTENTS OF 1 VIAL, SOLUTION, NON-ORAL TWICE A DAY
     Route: 065
  2. PULMOZYME [Suspect]
     Active Substance: DORNASE ALFA
     Dosage: 2.50 ML, AMPULES TWICE DAILY
     Route: 065

REACTIONS (1)
  - Condition aggravated [Unknown]
